FAERS Safety Report 5918929-1 (Version None)
Quarter: 2008Q4

REPORT INFORMATION
  Report Type: 
  Country: None (occurrence: None)
  Receive Date: 20081010
  Receipt Date: 20080925
  Transmission Date: 20090506
  Serious: Yes (Other)
  Sender: FDA-Public Use
  Company Number: JPI-P-004610

PATIENT
  Age: 44 Year
  Sex: Male

DRUGS (4)
  1. LUVOX [Suspect]
     Indication: BIPOLAR DISORDER
     Dates: start: 20080801
  2. OLANAZAPINE (OLANZAPINE) [Suspect]
     Indication: BIPOLAR DISORDER
     Dosage: (30 MG, 1 D)
     Dates: start: 20080804, end: 20080801
  3. LITHIUM SULFATE (LITHIUM SULFATE) [Suspect]
     Indication: BIPOLAR DISORDER
     Dosage: (1980 MG, 1 D), ORAL
     Route: 048
     Dates: start: 20010101
  4. CLONAZEPAM [Concomitant]

REACTIONS (4)
  - DRUG INTERACTION [None]
  - ELECTROCARDIOGRAM ABNORMAL [None]
  - ELECTROCARDIOGRAM REPOLARISATION ABNORMALITY [None]
  - ELECTROCARDIOGRAM U-WAVE ABNORMALITY [None]
